FAERS Safety Report 8127990-8 (Version None)
Quarter: 2012Q1

REPORT INFORMATION
  Report Type: 
  Country: None (occurrence: None)
  Receive Date: 20120210
  Receipt Date: 20120201
  Transmission Date: 20120608
  Serious: Yes (Hospitalization)
  Sender: FDA-Public Use
  Company Number: CO-ASTRAZENECA-2012SE03954

PATIENT
  Age: 26130 Day
  Sex: Male

DRUGS (8)
  1. ACETYLSALICYLIC ACID SRT [Suspect]
     Route: 048
     Dates: start: 20111007
  2. PLAVIX [Suspect]
     Indication: ACUTE MYOCARDIAL INFARCTION
     Route: 048
     Dates: start: 20110919, end: 20120108
  3. ENALAPRIL MALEATE [Concomitant]
     Indication: HYPERTENSION
     Route: 048
  4. LOVASTATIN [Concomitant]
     Indication: DYSLIPIDAEMIA
     Route: 048
  5. ACETYLSALICYLIC ACID SRT [Suspect]
     Route: 048
     Dates: end: 20111005
  6. PLAVIX [Suspect]
     Route: 048
     Dates: start: 20120128
  7. METOCLOPRAMIDE [Concomitant]
     Indication: CORONARY ARTERY DISEASE
     Route: 048
  8. ACETYLSALICYLIC ACID SRT [Suspect]
     Route: 048
     Dates: start: 20111006, end: 20111006

REACTIONS (1)
  - HAEMORRHOIDS [None]
